FAERS Safety Report 18548937 (Version 3)
Quarter: 2021Q1

REPORT INFORMATION
  Report Type: Report from Study
  Country: BR (occurrence: BR)
  Receive Date: 20201125
  Receipt Date: 20210217
  Transmission Date: 20210419
  Serious: Yes (Hospitalization)
  Sender: FDA-Public Use
  Company Number: BR-BIOGEN-2020BI00949412

PATIENT
  Age: 28 Year
  Sex: Male

DRUGS (1)
  1. TYSABRI [Suspect]
     Active Substance: NATALIZUMAB
     Indication: MULTIPLE SCLEROSIS
     Route: 042
     Dates: start: 201710

REACTIONS (6)
  - Coma [Recovered/Resolved]
  - Peripheral nerve injury [Recovered/Resolved with Sequelae]
  - Motor dysfunction [Not Recovered/Not Resolved]
  - Head injury [Recovered/Resolved]
  - Road traffic accident [Recovered/Resolved with Sequelae]
  - Hand fracture [Unknown]

NARRATIVE: CASE EVENT DATE: 20200909
